FAERS Safety Report 24040511 (Version 1)
Quarter: 2024Q3

REPORT INFORMATION
  Report Type: Spontaneous
  Country: US (occurrence: None)
  Receive Date: 20240701
  Receipt Date: 20240701
  Transmission Date: 20241016
  Serious: Yes (unspecified)
  Sender: Public
  Company Number: None

PATIENT
  Age: 37 Year
  Sex: Female

DRUGS (1)
  1. FERRLECIT [Suspect]
     Active Substance: SODIUM FERRIC GLUCONATE COMPLEX
     Dates: start: 20240612, end: 20240612

REACTIONS (5)
  - Infusion related reaction [None]
  - Nausea [None]
  - Pruritus [None]
  - Erythema [None]
  - Throat tightness [None]

NARRATIVE: CASE EVENT DATE: 20240621
